FAERS Safety Report 13289179 (Version 6)
Quarter: 2017Q3

REPORT INFORMATION
  Report Type: Report from Study
  Country: US (occurrence: US)
  Receive Date: 20170302
  Receipt Date: 20170927
  Transmission Date: 20171127
  Serious: Yes (Hospitalization)
  Sender: FDA-Public Use
  Company Number: US-EISAI MEDICAL RESEARCH-EC-2017-024709

PATIENT
  Sex: Female

DRUGS (7)
  1. EYE DROPS [Concomitant]
     Active Substance: UNSPECIFIED INGREDIENT
  2. LASIX [Concomitant]
     Active Substance: FUROSEMIDE
  3. LENVIMA [Suspect]
     Active Substance: LENVATINIB
     Route: 048
     Dates: start: 201703
  4. LIPITOR [Concomitant]
     Active Substance: ATORVASTATIN CALCIUM
  5. PROZAC [Concomitant]
     Active Substance: FLUOXETINE HYDROCHLORIDE
  6. LENVIMA [Suspect]
     Active Substance: LENVATINIB
     Indication: THYROID CANCER
     Route: 048
     Dates: start: 20170127, end: 201702
  7. LENVIMA [Suspect]
     Active Substance: LENVATINIB
     Route: 048
     Dates: start: 2017, end: 201703

REACTIONS (19)
  - Hypertension [Recovering/Resolving]
  - Skin exfoliation [Recovered/Resolved]
  - Oedema peripheral [Recovered/Resolved]
  - Central nervous system lesion [Recovering/Resolving]
  - Visual impairment [Not Recovered/Not Resolved]
  - Anxiety [Recovering/Resolving]
  - Paraesthesia oral [Not Recovered/Not Resolved]
  - Aphthous ulcer [Recovering/Resolving]
  - Eye pain [Recovered/Resolved]
  - Rash [Recovered/Resolved]
  - Alopecia [Not Recovered/Not Resolved]
  - Central nervous system inflammation [Recovering/Resolving]
  - Feeling abnormal [Recovered/Resolved]
  - Nausea [Not Recovered/Not Resolved]
  - Intestinal obstruction [Not Recovered/Not Resolved]
  - Arthralgia [Not Recovered/Not Resolved]
  - Cardiac failure congestive [Recovering/Resolving]
  - Abdominal pain [Recovered/Resolved]
  - Pain of skin [Recovered/Resolved]

NARRATIVE: CASE EVENT DATE: 2017
